FAERS Safety Report 4696185-2 (Version None)
Quarter: 2005Q2

REPORT INFORMATION
  Report Type: 
  Country: None (occurrence: None)
  Receive Date: 20050620
  Receipt Date: 20050606
  Transmission Date: 20051028
  Serious: Yes (Hospitalization)
  Sender: FDA-Public Use
  Company Number: 081-9033-M0100025

PATIENT
  Age: 63 Year
  Sex: Female

DRUGS (15)
  1. ALPRAZOLAM [Suspect]
     Indication: DEPRESSION
     Dosage: 1.2 MG DAILY ORAL
     Route: 048
     Dates: start: 20010613, end: 20011107
  2. DILTIAZEM [Suspect]
     Indication: HYPERTENSION
     Dosage: 90 MG DAILY ORAL
     Route: 048
     Dates: end: 20011107
  3. CYTOTEC [Suspect]
     Indication: GASTRIC ULCER
     Dosage: 0.8 MG DAILY ORAL
     Route: 048
     Dates: start: 20010728, end: 20011107
  4. FLUVOXAMINE MALEATE (FLUVOXAMINE MALEATE) [Suspect]
     Indication: DEPRESSION
     Dosage: 100 MG DAILY ORAL
     Route: 048
     Dates: start: 20010528, end: 20011107
  5. FLUNITRAZEPAM (FLUNITRAZEPAM) [Suspect]
     Indication: INSOMNIA
     Dosage: 5 MG DAILY ORAL
     Route: 048
     Dates: start: 20010601, end: 20011107
  6. LOXOPROFEN (LOXOPROFEN) [Suspect]
     Indication: CARPAL TUNNEL SYNDROME
     Dosage: 180 MG DAILY ORAL
     Route: 048
     Dates: start: 20010717, end: 20011107
  7. PRAVASTATIN [Suspect]
     Indication: HYPERLIPIDAEMIA
     Dosage: 10 MG DAILY ORAL
     Route: 048
     Dates: end: 20011107
  8. BEZAFIBRATE (BEZAFIBRATE) [Suspect]
     Indication: HYPERLIPIDAEMIA
     Dosage: 400 MG DAILY ORAL
     Route: 048
     Dates: end: 20011107
  9. SULPIRIDE (SULPIRIDE) [Suspect]
     Indication: DEPRESSION
     Dosage: 150 MG DAILY ORAL
     Route: 048
     Dates: end: 20011107
  10. PLANT ALKALOIDS AND OTHER NATURAL PRODUCTS [Concomitant]
  11. MAGNESIUM OXIDE [Concomitant]
  12. COBAMAMIDE [Concomitant]
  13. ESTRIOL [Concomitant]
  14. ZOPICLONE [Concomitant]
  15. SENNOSIDE A [Concomitant]

REACTIONS (21)
  - ALANINE AMINOTRANSFERASE INCREASED [None]
  - ASPARTATE AMINOTRANSFERASE INCREASED [None]
  - BLOOD ALKALINE PHOSPHATASE INCREASED [None]
  - BLOOD BILIRUBIN DECREASED [None]
  - BLOOD CHLORIDE INCREASED [None]
  - BLOOD CHOLESTEROL INCREASED [None]
  - BLOOD CREATINE PHOSPHOKINASE INCREASED [None]
  - BLOOD CREATININE INCREASED [None]
  - BLOOD LACTATE DEHYDROGENASE INCREASED [None]
  - BLOOD UREA INCREASED [None]
  - CARPAL TUNNEL SYNDROME [None]
  - GASTRIC ULCER [None]
  - GENERALISED OEDEMA [None]
  - HAEMATOCRIT DECREASED [None]
  - HAEMOGLOBIN DECREASED [None]
  - HYPERLIPIDAEMIA [None]
  - INSOMNIA [None]
  - LYMPHOCYTE STIMULATION TEST POSITIVE [None]
  - MONOCYTE COUNT INCREASED [None]
  - PROTEIN TOTAL DECREASED [None]
  - RED BLOOD CELL COUNT DECREASED [None]
